FAERS Safety Report 6128650-5 (Version None)
Quarter: 2009Q1

REPORT INFORMATION
  Report Type: 
  Country: None (occurrence: None)
  Receive Date: 20090323
  Receipt Date: 20090311
  Transmission Date: 20090719
  Serious: Yes (Other)
  Sender: FDA-Public Use
  Company Number: AU-PFIZER INC-2009183146

PATIENT

DRUGS (4)
  1. CHAMPIX [Suspect]
     Dosage: UNK
  2. ALLEGRON [Concomitant]
  3. VALIUM [Concomitant]
  4. MOGADON [Concomitant]

REACTIONS (3)
  - NIGHTMARE [None]
  - OROPHARYNGEAL BLISTERING [None]
  - TONGUE ULCERATION [None]
